FAERS Safety Report 7524581-4 (Version None)
Quarter: 2011Q2

REPORT INFORMATION
  Report Type: 
  Country: None (occurrence: None)
  Receive Date: 20110525
  Receipt Date: 20110513
  Transmission Date: 20111010
  Serious: Yes (Hospitalization, Other)
  Sender: FDA-Public Use
  Company Number: 923531

PATIENT
  Age: 72 Year
  Sex: Male
  Weight: 89.8 kg

DRUGS (8)
  1. SIMVASTATIN [Concomitant]
  2. BISOPROLOL FUMARATE [Concomitant]
  3. (BENDROFLUMETHIAZIDE) [Concomitant]
  4. ENOXAPARIN [Concomitant]
  5. OXALIPLATIN [Suspect]
     Indication: CHEMOTHERAPY
     Dosage: SEE IMAGE
     Route: 042
     Dates: start: 20110421, end: 20110421
  6. OXALIPLATIN [Suspect]
     Indication: GASTROINTESTINAL CARCINOMA
     Dosage: SEE IMAGE
     Route: 042
     Dates: start: 20110421, end: 20110421
  7. OXALIPLATIN [Suspect]
     Indication: CHEMOTHERAPY
     Dosage: SEE IMAGE
     Route: 042
     Dates: start: 20110421, end: 20110421
  8. OXALIPLATIN [Suspect]
     Indication: GASTROINTESTINAL CARCINOMA
     Dosage: SEE IMAGE
     Route: 042
     Dates: start: 20110421, end: 20110421

REACTIONS (4)
  - ERYTHEMA [None]
  - THROAT IRRITATION [None]
  - RASH GENERALISED [None]
  - DYSPNOEA [None]
